FAERS Safety Report 6271724-9 (Version None)
Quarter: 2009Q3

REPORT INFORMATION
  Report Type: 
  Country: None (occurrence: None)
  Receive Date: 20090717
  Receipt Date: 20090624
  Transmission Date: 20100115
  Serious: No
  Sender: FDA-Public Use
  Company Number: US-BAYER-200911987BCC

PATIENT
  Age: 38 Year
  Sex: Female
  Weight: 61 kg

DRUGS (2)
  1. ALEVE (CAPLET) [Suspect]
     Indication: HEADACHE
     Dosage: TOOK TWO ALEVE CAPLETS, MAYBE THREE AT ONCE
     Route: 048
     Dates: start: 20090617, end: 20090617
  2. TYLENOL (CAPLET) [Concomitant]
     Indication: HEADACHE
     Dosage: TOOK TWO TYLENOL
     Route: 048

REACTIONS (1)
  - HEADACHE [None]
